FAERS Safety Report 25096055 (Version 1)
Quarter: 2025Q1

REPORT INFORMATION
  Report Type: Spontaneous
  Country: US (occurrence: US)
  Receive Date: 20250319
  Receipt Date: 20250319
  Transmission Date: 20250408
  Serious: No
  Sender: ABBVIE
  Company Number: US-ABBVIE-6176322

PATIENT
  Age: 18 Year
  Sex: Male

DRUGS (1)
  1. RINVOQ [Suspect]
     Active Substance: UPADACITINIB
     Indication: Post-acute COVID-19 syndrome
     Route: 048

REACTIONS (3)
  - Pre-existing condition improved [Unknown]
  - Off label use [Recovering/Resolving]
  - Therapeutic response unexpected [Unknown]
